FAERS Safety Report 19459078 (Version 1)
Quarter: 2021Q2

REPORT INFORMATION
  Report Type: Spontaneous
  Country: ES (occurrence: ES)
  Receive Date: 20210624
  Receipt Date: 20210624
  Transmission Date: 20210717
  Serious: Yes (Other)
  Sender: FDA-Public Use
  Company Number: ES-SA-2021SA202814

PATIENT
  Sex: Female
  Weight: 64 kg

DRUGS (1)
  1. LANTUS [Suspect]
     Active Substance: INSULIN GLARGINE
     Indication: TYPE 2 DIABETES MELLITUS
     Dosage: UNK
     Route: 058
     Dates: start: 2016

REACTIONS (9)
  - Hyperhidrosis [Recovered/Resolved]
  - Memory impairment [Not Recovered/Not Resolved]
  - Macular degeneration [Not Recovered/Not Resolved]
  - Feeling abnormal [Recovered/Resolved]
  - Blood glucose decreased [Recovered/Resolved]
  - Asthenia [Recovered/Resolved]
  - Multiple use of single-use product [Unknown]
  - Visual impairment [Not Recovered/Not Resolved]
  - Muscle atrophy [Not Recovered/Not Resolved]

NARRATIVE: CASE EVENT DATE: 2019
